FAERS Safety Report 8996060 (Version 1)
Quarter: 2013Q1

REPORT INFORMATION
  Report Type: Spontaneous
  Country: US (occurrence: US)
  Receive Date: 20130103
  Receipt Date: 20130103
  Transmission Date: 20140127
  Serious: No
  Sender: FDA-Public Use
  Company Number: US-ABBOTT-12P-163-1004865-00

PATIENT
  Age: 53 Year
  Sex: Female
  Weight: 66.74 kg

DRUGS (4)
  1. SYNTHROID [Suspect]
     Dates: end: 201210
  2. SYNTHROID [Suspect]
     Dates: start: 201210, end: 201211
  3. SYNTHROID [Suspect]
     Dates: start: 201211
  4. NEXIUM [Concomitant]
     Indication: PRODUCT USED FOR UNKNOWN INDICATION

REACTIONS (5)
  - Headache [Recovering/Resolving]
  - Pain in extremity [Recovering/Resolving]
  - Angina pectoris [Recovering/Resolving]
  - Weight decreased [Unknown]
  - Blood thyroid stimulating hormone decreased [Unknown]
